FAERS Safety Report 24443917 (Version 1)
Quarter: 2024Q4

REPORT INFORMATION
  Report Type: Spontaneous
  Country: US (occurrence: None)
  Receive Date: 20241015
  Receipt Date: 20241015
  Transmission Date: 20250115
  Serious: Yes (Hospitalization)
  Sender: Public
  Company Number: None

PATIENT
  Age: 49 Year
  Sex: Female

DRUGS (1)
  1. MIRCERA [Suspect]
     Active Substance: METHOXY POLYETHYLENE GLYCOL-EPOETIN BETA
     Indication: Nephrogenic anaemia
     Dosage: OTHER FREQUENCY : FIRST DOSE;?
     Route: 042

REACTIONS (5)
  - Pruritus [None]
  - Feeling hot [None]
  - Dyskinesia [None]
  - Dialysis [None]
  - Dyskinesia [None]

NARRATIVE: CASE EVENT DATE: 20241008
